FAERS Safety Report 22207554 (Version 2)
Quarter: 2023Q2

REPORT INFORMATION
  Report Type: Spontaneous
  Country: JP (occurrence: JP)
  Receive Date: 20230413
  Receipt Date: 20230502
  Transmission Date: 20230722
  Serious: Yes (Hospitalization)
  Sender: FDA-Public Use
  Company Number: JP-PFIZER INC-PV202300065955

PATIENT
  Age: 62 Year
  Sex: Male
  Weight: 65.7 kg

DRUGS (9)
  1. RHEUMATREX [Suspect]
     Active Substance: METHOTREXATE SODIUM
     Indication: Rheumatoid arthritis
     Dosage: 6 MG, TWICE (ONCE A WEEK)
     Route: 048
  2. RHEUMATREX [Suspect]
     Active Substance: METHOTREXATE SODIUM
     Dosage: 6 MG, TWICE (ONCE A WEEK)
     Route: 048
     Dates: start: 20230110, end: 20230131
  3. PIPERACILLIN SODIUM\TAZOBACTAM SODIUM [Suspect]
     Active Substance: PIPERACILLIN SODIUM\TAZOBACTAM SODIUM
     Indication: Pyrexia
     Dosage: 4.5 G, 3-4X/DAY
     Route: 041
     Dates: start: 20230109, end: 20230119
  4. CILOSTAZOL [Concomitant]
     Active Substance: CILOSTAZOL
     Dosage: UNK
     Dates: start: 20230108, end: 20230220
  5. CRESTOR [Concomitant]
     Active Substance: ROSUVASTATIN CALCIUM
     Dosage: UNK
     Dates: start: 20230108, end: 20230316
  6. VONOPRAZAN FUMARATE [Concomitant]
     Active Substance: VONOPRAZAN FUMARATE
     Dosage: UNK
     Dates: start: 20230108, end: 20230316
  7. GLUTAMINE\SODIUM DECAHYDROAZULENE-1-SULFONATE [Concomitant]
     Active Substance: GLUTAMINE\SODIUM DECAHYDROAZULENE-1-SULFONATE
     Dosage: UNK
     Dates: start: 20230108, end: 20230213
  8. MIYA-BM [Concomitant]
     Active Substance: CLOSTRIDIUM BUTYRICUM SPORES STRAIN M-55
     Dosage: UNK
     Dates: start: 20230108, end: 20230213
  9. CLAZOSENTAN [Concomitant]
     Dosage: UNK
     Dates: start: 20230109, end: 20230121

REACTIONS (4)
  - Hepatic enzyme increased [Recovering/Resolving]
  - Pyrexia [Recovering/Resolving]
  - Liver disorder [Recovered/Resolved]
  - Rash [Recovered/Resolved]

NARRATIVE: CASE EVENT DATE: 20230109
